FAERS Safety Report 6550089-9 (Version None)
Quarter: 2010Q1

REPORT INFORMATION
  Report Type: 
  Country: None (occurrence: None)
  Receive Date: 20100125
  Receipt Date: 20100115
  Transmission Date: 20100710
  Serious: Yes (Other)
  Sender: FDA-Public Use
  Company Number: IT-ABBOTT-10P-083-0619697-00

PATIENT
  Age: 5 Month
  Sex: Female

DRUGS (3)
  1. DEPAKENE [Suspect]
     Indication: INFANTILE SPASMS
     Route: 048
     Dates: start: 20090930, end: 20091006
  2. SABRIL [Concomitant]
     Indication: DRUG USE FOR UNKNOWN INDICATION
     Dates: start: 20090701
  3. SYNACTHEN [Concomitant]
     Indication: DRUG USE FOR UNKNOWN INDICATION
     Dates: start: 20090701

REACTIONS (3)
  - DIARRHOEA [None]
  - NERVOUSNESS [None]
  - REGURGITATION [None]
